FAERS Safety Report 5202678-1 (Version None)
Quarter: 2006Q4

REPORT INFORMATION
  Report Type: 
  Country: None (occurrence: None)
  Receive Date: 20061016
  Receipt Date: 20060801
  Transmission Date: 20070319
  Serious: No
  Sender: FDA-Public Use
  Company Number: 2006SP002880

PATIENT
  Age: 82 Year
  Sex: Female
  Weight: 53.5244 kg

DRUGS (10)
  1. LUNESTA [Suspect]
     Indication: INITIAL INSOMNIA
     Dosage: 2 MG;ORAL
     Route: 048
     Dates: start: 20060601
  2. AMITRIPTYLINE HCL [Concomitant]
  3. SIMVASTATIN [Concomitant]
  4. SYNTHROID [Concomitant]
  5. LISINOPRIL [Concomitant]
  6. FAMOTIDINE [Concomitant]
  7. EVISTA [Concomitant]
  8. ATENOLOL [Concomitant]
  9. ADVAIR DISKUS 100/50 [Concomitant]
  10. PENTOXIFYLLINE [Concomitant]

REACTIONS (1)
  - DYSGEUSIA [None]
